FAERS Safety Report 6579354-6 (Version None)
Quarter: 2010Q1

REPORT INFORMATION
  Report Type: 
  Country: None (occurrence: None)
  Receive Date: 20100212
  Receipt Date: 20100205
  Transmission Date: 20100710
  Serious: Yes (Hospitalization)
  Sender: FDA-Public Use
  Company Number: FR-WYE-G05516510

PATIENT
  Age: 80 Year
  Sex: Male

DRUGS (12)
  1. TAZOCILLINE [Suspect]
     Indication: ERYSIPELAS
     Route: 042
     Dates: start: 20090930, end: 20091006
  2. GLUCOR [Concomitant]
     Dosage: UNKNOWN
     Route: 048
  3. METFORMIN [Concomitant]
     Dosage: UNKNOWN
     Route: 048
  4. DAONIL [Concomitant]
     Dosage: UNKNOWN
     Route: 048
  5. ALLOPURINOL [Concomitant]
     Dosage: UNKNOWN
     Route: 048
  6. NISISCO [Concomitant]
     Dosage: UNKNOWN
     Route: 048
  7. BISOPROLOL [Concomitant]
     Dosage: UNKNOWN
     Route: 048
  8. DIFFU K [Concomitant]
     Dosage: UNKNOWN
     Route: 048
  9. ATHYMIL [Concomitant]
     Dosage: UNKNOWN
     Route: 048
  10. TANAKAN [Concomitant]
     Dosage: UNKNOWN
     Route: 048
  11. FLAGYL [Suspect]
     Indication: ERYSIPELAS
     Route: 042
     Dates: start: 20091002, end: 20091006
  12. HYPERIUM [Concomitant]
     Dosage: UNKNOWN
     Route: 048

REACTIONS (2)
  - TOXIC SKIN ERUPTION [None]
  - URTICARIA [None]
